FAERS Safety Report 10917478 (Version 1)
Quarter: 2015Q1

REPORT INFORMATION
  Report Type: Spontaneous
  Country: US (occurrence: US)
  Receive Date: 20150316
  Receipt Date: 20150316
  Transmission Date: 20150721
  Serious: No
  Sender: FDA-Public Use
  Company Number: US-JNJFOC-20150218972

PATIENT
  Sex: Male

DRUGS (3)
  1. BENADRYL [Concomitant]
     Active Substance: DIPHENHYDRAMINE HYDROCHLORIDE
     Indication: MUSCULOSKELETAL STIFFNESS
     Dosage: AS NECESSARY
     Route: 065
  2. INVEGA [Suspect]
     Active Substance: PALIPERIDONE
     Indication: PRODUCT USED FOR UNKNOWN INDICATION
     Route: 048
  3. BENADRYL [Concomitant]
     Active Substance: DIPHENHYDRAMINE HYDROCHLORIDE
     Indication: MUSCLE SPASMS
     Dosage: AS NECESSARY
     Route: 065

REACTIONS (7)
  - Weight decreased [Unknown]
  - Treatment noncompliance [Unknown]
  - Paranoia [Unknown]
  - Depressed mood [Unknown]
  - Hallucination, auditory [Unknown]
  - Restlessness [Unknown]
  - Speech disorder [Unknown]
